FAERS Safety Report 5787090-9 (Version None)
Quarter: 2008Q2

REPORT INFORMATION
  Report Type: 
  Country: None (occurrence: None)
  Receive Date: 20080623
  Receipt Date: 20080623
  Transmission Date: 20081010
  Serious: Yes (Death, Life-Threatening, Hospitalization)
  Sender: FDA-Public Use
  Company Number: None

PATIENT
  Age: 79 Year
  Sex: Female
  Weight: 78.4723 kg

DRUGS (7)
  1. COUMADIN [Suspect]
     Indication: ATRIAL FIBRILLATION
     Dosage: 5 MG QDAY PO
     Route: 048
     Dates: start: 20080506, end: 20080526
  2. ASPIRIN [Suspect]
     Indication: CARDIAC DISORDER
     Dosage: 81 MG QDAY PO CHRONIC
     Route: 048
  3. HYDRALAZINE HCL [Concomitant]
  4. ATENOLOL [Concomitant]
  5. ADVAIR DISKUS 100/50 [Concomitant]
  6. LASIX [Concomitant]
  7. POTASSIUM CHLORIDE [Concomitant]

REACTIONS (10)
  - ACUTE RESPIRATORY FAILURE [None]
  - CARDIO-RESPIRATORY ARREST [None]
  - CHROMATURIA [None]
  - CHRONIC OBSTRUCTIVE PULMONARY DISEASE [None]
  - EPISTAXIS [None]
  - INTERNATIONAL NORMALISED RATIO INCREASED [None]
  - PULMONARY HYPERTENSION [None]
  - RENAL FAILURE CHRONIC [None]
  - THERAPEUTIC AGENT TOXICITY [None]
  - TREATMENT NONCOMPLIANCE [None]
